FAERS Safety Report 18809188 (Version 1)
Quarter: 2021Q1

REPORT INFORMATION
  Report Type: Spontaneous
  Country: US (occurrence: US)
  Receive Date: 20210129
  Receipt Date: 20210129
  Transmission Date: 20210419
  Serious: No
  Sender: FDA-Public Use
  Company Number: US-BAYER-2021-041945

PATIENT
  Age: 13 Year
  Sex: Female

DRUGS (2)
  1. CAPECITABINE. [Suspect]
     Active Substance: CAPECITABINE
     Dosage: 1300 MG, BID ON DAYS 1?7 AND 14?21
  2. SORAFENIB (RAF KINASE INHIBITOR) [Suspect]
     Active Substance: SORAFENIB
     Indication: HEPATOCELLULAR CARCINOMA
     Dosage: 400 MG, BID ON DAYS 1?28 FOR 24 DAYS
     Route: 048

REACTIONS (5)
  - Off label use [None]
  - Dry skin [None]
  - Product use in unapproved indication [None]
  - Palmar-plantar erythrodysaesthesia syndrome [Recovered/Resolved]
  - Product administered to patient of inappropriate age [None]
